FAERS Safety Report 24869171 (Version 4)
Quarter: 2025Q2

REPORT INFORMATION
  Report Type: Spontaneous
  Country: US (occurrence: US)
  Receive Date: 20250121
  Receipt Date: 20250624
  Transmission Date: 20250716
  Serious: No
  Sender: PFIZER
  Company Number: US-PFIZER INC-PV202400140612

PATIENT
  Age: 27 Year
  Sex: Female

DRUGS (22)
  1. IBRANCE [Suspect]
     Active Substance: PALBOCICLIB
     Indication: Breast cancer female
     Route: 048
     Dates: start: 20241002
  2. ABRAXANE [Concomitant]
     Active Substance: PACLITAXEL
  3. CINVANTI [Concomitant]
     Active Substance: APREPITANT
  4. CYCLOPHOSPHAMIDE [Concomitant]
     Active Substance: CYCLOPHOSPHAMIDE
  5. DEXAMETHASONE PHOSPHATE [Concomitant]
     Active Substance: DEXAMETHASONE PHOSPHATE
  6. DEXAMETHASONE PHOSPHATE [Concomitant]
     Active Substance: DEXAMETHASONE PHOSPHATE
  7. DEXAMETHASONE [Concomitant]
     Active Substance: DEXAMETHASONE
  8. DIPHENHYDRAMINE [Concomitant]
     Active Substance: DIPHENHYDRAMINE
  9. DOXORUBICIN [Concomitant]
     Active Substance: DOXORUBICIN
  10. DOXORUBICIN [Concomitant]
     Active Substance: DOXORUBICIN
  11. FAMOTIDINE [Concomitant]
     Active Substance: FAMOTIDINE
  12. FERROUS SULFATE [Concomitant]
     Active Substance: FERROUS SULFATE
  13. GRANISETRON [Concomitant]
     Active Substance: GRANISETRON
  14. IBUPROFEN [Concomitant]
     Active Substance: IBUPROFEN
  15. LUPRON DEPOT [Concomitant]
     Active Substance: LEUPROLIDE ACETATE
  16. ACETAMINOPHEN\OXYCODONE HYDROCHLORIDE [Concomitant]
     Active Substance: ACETAMINOPHEN\OXYCODONE HYDROCHLORIDE
  17. PACLITAXEL [Concomitant]
     Active Substance: PACLITAXEL
  18. PALONOSETRON [Concomitant]
     Active Substance: PALONOSETRON
  19. SODIUM CHLORIDE [Concomitant]
     Active Substance: SODIUM CHLORIDE
  20. FASLODEX [Concomitant]
     Active Substance: FULVESTRANT
  21. VITAMIN D NOS [Concomitant]
     Active Substance: CHOLECALCIFEROL\ERGOCALCIFEROL
  22. GABAPENTIN [Concomitant]
     Active Substance: GABAPENTIN

REACTIONS (3)
  - Pain in extremity [Unknown]
  - Hypoaesthesia [Unknown]
  - Product dose omission issue [Unknown]
